FAERS Safety Report 11791933 (Version 3)
Quarter: 2016Q1

REPORT INFORMATION
  Report Type: Report from Study
  Country: NL (occurrence: NL)
  Receive Date: 20151201
  Receipt Date: 20160108
  Transmission Date: 20160525
  Serious: Yes (Death)
  Sender: FDA-Public Use
  Company Number: NL-BAXALTA-2015BLT002931

PATIENT
  Age: 17 Year
  Sex: Female

DRUGS (2)
  1. SUBCUVIA [Suspect]
     Active Substance: HUMAN IMMUNOGLOBULIN G
     Indication: DIGEORGE^S SYNDROME
     Dosage: 1.6 G, 1X A WEEK
     Route: 058
     Dates: start: 20130122, end: 20130122
  2. SUBCUVIA [Suspect]
     Active Substance: HUMAN IMMUNOGLOBULIN G
     Indication: OFF LABEL USE
     Dosage: 1.6 G, 1X A WEEK
     Route: 058
     Dates: start: 20130129, end: 20130129

REACTIONS (1)
  - Death [Fatal]

NARRATIVE: CASE EVENT DATE: 20150912
